FAERS Safety Report 8713224 (Version 1)
Quarter: 2012Q4

REPORT INFORMATION
  Report Type: 
  Country: US (occurrence: US)
  Receive Date: 20120829
  Receipt Date: 20120829
  Transmission Date: 20130627
  Serious: Yes (Other)
  Sender: FDA-Public Use
  Company Number: US-ROCHE-1095395

PATIENT
  Sex: Female

DRUGS (12)
  1. XOLAIR [Suspect]
     Indication: ASTHMA
     Dates: start: 20061012
  2. XOLAIR [Suspect]
     Dates: start: 20081030
  3. VICODIN [Concomitant]
  4. HYDROCHLOROTHIAZIDE [Concomitant]
  5. PREDNISONE [Concomitant]
  6. AVELOX [Concomitant]
  7. SINGULAIR [Concomitant]
  8. ALBUTEROL INHALER [Concomitant]
  9. VENTOLIN INHALER [Concomitant]
  10. PROVENTIL INHALER [Concomitant]
  11. SYMBICORT [Concomitant]
  12. ADVAIR [Concomitant]

REACTIONS (6)
  - Respiratory tract infection [Unknown]
  - Bronchitis [Unknown]
  - Sinusitis [Unknown]
  - Cough [Unknown]
  - Sputum discoloured [Unknown]
  - Emotional disorder [Unknown]
